FAERS Safety Report 10026753 (Version 1)
Quarter: 2014Q1

REPORT INFORMATION
  Report Type: Spontaneous
  Country: ES (occurrence: None)
  Receive Date: 20140318
  Receipt Date: 20140318
  Transmission Date: 20141002
  Serious: No
  Sender: FDA-Public Use
  Company Number: FK201305490

PATIENT
  Age: 62 Year
  Sex: Male

DRUGS (5)
  1. MIDAZOLAM [Suspect]
     Indication: RADICAL CYSTECTOMY
  2. AMOXICILLIN/CLAVULANIC ACID [Suspect]
     Indication: RADICAL CYSTECTOMY
     Dosage: 2 GMS.
  3. PROPOFOL [Suspect]
     Indication: RADICAL CYSTECTOMY
  4. ROCURONIUM [Suspect]
     Indication: RADICAL CYSTECTOMY
  5. FENTANYL (FENTANYL) [Suspect]
     Indication: RADICAL CYSTECTOMY

REACTIONS (1)
  - Anaphylactic reaction [None]
